FAERS Safety Report 15617922 (Version 1)
Quarter: 2018Q4

REPORT INFORMATION
  Report Type: Spontaneous
  Country: US (occurrence: US)
  Receive Date: 20181109
  Receipt Date: 20181109
  Transmission Date: 20190205
  Serious: Yes (Disabling, Other)
  Sender: FDA-Public Use
  Company Number: None

PATIENT
  Age: 63 Year
  Sex: Female

DRUGS (9)
  1. CALCIUM [Concomitant]
     Active Substance: CALCIUM
  2. CALCIUM [Concomitant]
     Active Substance: CALCIUM
  3. VITAMIN E\VITAMINS [Concomitant]
     Active Substance: .ALPHA.-TOCOPHEROL\VITAMINS
  4. E-VIT [Concomitant]
  5. B-VITS - ALL [Concomitant]
  6. HYDROCODONE-APAP 5-325 [Suspect]
     Active Substance: ACETAMINOPHEN\HYDROCODONE BITARTRATE
     Indication: NEURALGIA
     Dosage: ?          QUANTITY:5 MG MILLIGRAM(S);OTHER FREQUENCY:1-2@6HRS;?
     Route: 048
     Dates: start: 201804
  7. C-VITS [Concomitant]
  8. C VITAMINS [Concomitant]
  9. B VITAMINS [Concomitant]
     Active Substance: CYANOCOBALAMIN\DEXPANTHENOL\NIACINAMIDE\PYRIDOXINE HYDROCHLORIDE\RIBOFLAVIN 5^-PHOSPHATE SODIUM\THIAMINE HYDROCHLORIDE\VITAMIN B COMPLEX

REACTIONS (5)
  - Drug ineffective [None]
  - Product formulation issue [None]
  - Product complaint [None]
  - Therapeutic response increased [None]
  - General physical health deterioration [None]

NARRATIVE: CASE EVENT DATE: 201804
